FAERS Safety Report 15994928 (Version 1)
Quarter: 2019Q1

REPORT INFORMATION
  Report Type: Spontaneous
  Country: US (occurrence: US)
  Receive Date: 20190222
  Receipt Date: 20190222
  Transmission Date: 20190418
  Serious: No
  Sender: FDA-Public Use
  Company Number: US-LEO PHARMA-316960

PATIENT
  Sex: Male

DRUGS (1)
  1. PICATO [Suspect]
     Active Substance: INGENOL MEBUTATE
     Indication: PRODUCT USED FOR UNKNOWN INDICATION
     Dosage: APPLIED 9 TUBES ACCIDENTALLY, ONE TUBE DAILY FOR 9 DAYS
     Route: 061

REACTIONS (3)
  - Application site scab [Recovered/Resolved]
  - Application site erythema [Recovered/Resolved]
  - Incorrect product administration duration [Recovered/Resolved]
